FAERS Safety Report 6442260-1 (Version None)
Quarter: 2009Q4

REPORT INFORMATION
  Report Type: 
  Country: None (occurrence: None)
  Receive Date: 20091116
  Receipt Date: 20091109
  Transmission Date: 20100525
  Serious: Yes (Other)
  Sender: FDA-Public Use
  Company Number: GB-B.I. PHARMACEUTICALS,INC./RIDGEFIELD-2009-BP-12998BP

PATIENT
  Age: 42 Year
  Sex: Female
  Weight: 74 kg

DRUGS (7)
  1. APTIVUS/RITONAVIR CAPSULES [Suspect]
     Indication: HIV INFECTION
     Dosage: 1000 MG
     Route: 048
     Dates: start: 20060905, end: 20081023
  2. NORVIR [Suspect]
     Indication: HIV INFECTION
     Dosage: 400 MG
     Route: 048
  3. PREZISTA [Suspect]
     Indication: HIV INFECTION
     Dosage: 1200 MG
     Route: 048
     Dates: start: 20081023
  4. ETRAVIRINE (ETRAVIRINE) [Suspect]
     Indication: HIV INFECTION
     Dosage: 1000 MG
     Route: 048
     Dates: start: 20081023
  5. RALTEGRAVIR (RALTEGRAVIR) [Suspect]
     Indication: HIV INFECTION
     Dosage: 800 MG
     Route: 048
  6. TRUVADA [Suspect]
     Indication: HIV INFECTION
     Route: 048
     Dates: start: 20060905, end: 20081023
  7. INSULIN [Concomitant]
     Indication: GESTATIONAL DIABETES

REACTIONS (1)
  - HEPATITIS [None]
